FAERS Safety Report 15474993 (Version 1)
Quarter: 2018Q4

REPORT INFORMATION
  Report Type: Spontaneous
  Country: AU (occurrence: AU)
  Receive Date: 20181008
  Receipt Date: 20181008
  Transmission Date: 20190205
  Serious: Yes (Hospitalization, Other)
  Sender: FDA-Public Use
  Company Number: AU-SA-2018SA273117

PATIENT
  Age: 39 Year
  Sex: Female

DRUGS (3)
  1. LEMTRADA [Suspect]
     Active Substance: ALEMTUZUMAB
     Indication: MULTIPLE SCLEROSIS
     Dosage: UNK UNK, UNK
     Route: 041
     Dates: start: 201707, end: 201707
  2. VITAMIN D [ERGOCALCIFEROL] [Concomitant]
     Dosage: UNK UNK, UNK
     Route: 065
  3. LEMTRADA [Suspect]
     Active Substance: ALEMTUZUMAB
     Dosage: UNK
     Route: 041
     Dates: start: 201607, end: 201607

REACTIONS (12)
  - Lymphadenopathy [Unknown]
  - Multiple sclerosis [Unknown]
  - Platelet count abnormal [Unknown]
  - Central nervous system lesion [Unknown]
  - Immune thrombocytopenic purpura [Unknown]
  - Splenomegaly [Unknown]
  - Nuclear magnetic resonance imaging abnormal [Unknown]
  - Seasonal allergy [Unknown]
  - Ill-defined disorder [Unknown]
  - Cholecystitis [Unknown]
  - Abdominal pain [Recovering/Resolving]
  - Pyrexia [Recovering/Resolving]

NARRATIVE: CASE EVENT DATE: 20160706
